FAERS Safety Report 7123741-4 (Version None)
Quarter: 2010Q4

REPORT INFORMATION
  Report Type: 
  Country: None (occurrence: None)
  Receive Date: 20101125
  Receipt Date: 20101117
  Transmission Date: 20110411
  Serious: Yes (Other)
  Sender: FDA-Public Use
  Company Number: ES-ELI_LILLY_AND_COMPANY-ES201011004989

PATIENT
  Age: 61 Year
  Sex: Male

DRUGS (2)
  1. GEMZAR [Suspect]
     Indication: COLORECTAL CANCER
     Dosage: 1000 MG/M2, WEEKLY (1/W)
     Route: 042
     Dates: start: 20100216
  2. CAPECITABINE [Concomitant]
     Indication: COLORECTAL CANCER
     Dosage: 1500 MG, 2/W
     Route: 048
     Dates: start: 20100216

REACTIONS (3)
  - OFF LABEL USE [None]
  - SKIN TOXICITY [None]
  - VISUAL ACUITY REDUCED [None]
